FAERS Safety Report 4640458-6 (Version None)
Quarter: 2005Q2

REPORT INFORMATION
  Report Type: 
  Country: None (occurrence: None)
  Receive Date: 20050419
  Receipt Date: 20050404
  Transmission Date: 20051028
  Serious: Yes (Other)
  Sender: FDA-Public Use
  Company Number: 2005040954

PATIENT
  Age: 50 Year
  Sex: Male

DRUGS (4)
  1. CADUET [Suspect]
     Indication: ILL-DEFINED DISORDER
  2. NORVASC [Concomitant]
     Indication: HYPERTENSION
     Dates: start: 20050201
  3. CARDENALIN (DOXAZOSIN) [Suspect]
     Indication: HYPERTENSION
     Dosage: 2 MG (1 IN 1 D)
     Dates: start: 20050301
  4. ALL OTHER THERAPEUTIC PRODUCTS (ALL OTHER THERAPEUTIC PRODUCTS) [Suspect]
     Indication: HYPERTENSION
     Dates: start: 20050101

REACTIONS (4)
  - BLOOD PRESSURE SYSTOLIC ABNORMAL [None]
  - HYPOTENSION [None]
  - SHOCK [None]
  - WRONG DRUG ADMINISTERED [None]
